FAERS Safety Report 4411798-0 (Version None)
Quarter: 2004Q3

REPORT INFORMATION
  Report Type: 
  Country: None (occurrence: None)
  Receive Date: 20040730
  Receipt Date: 20040610
  Transmission Date: 20050211
  Serious: Yes (Hospitalization, Other)
  Sender: FDA-Public Use
  Company Number: 200414480US

PATIENT
  Sex: Female
  Weight: 62 kg

DRUGS (4)
  1. LANTUS [Suspect]
     Indication: DIABETES MELLITUS INSULIN-DEPENDENT
     Route: 058
     Dates: start: 20040101, end: 20040501
  2. GLUCOSE [Concomitant]
     Dosage: DOSE: UNK
     Route: 042
  3. HUMALOG [Concomitant]
     Dosage: DOSE: UNK
  4. NPH INSULIN [Concomitant]
     Dosage: DOSE: UNK

REACTIONS (5)
  - AUTOIMMUNE DISORDER [None]
  - DIABETIC KETOACIDOSIS [None]
  - HYPOGLYCAEMIA [None]
  - PNEUMONIA PRIMARY ATYPICAL [None]
  - WEIGHT INCREASED [None]
